FAERS Safety Report 18107179 (Version 1)
Quarter: 2020Q3

REPORT INFORMATION
  Report Type: Spontaneous
  Country: US (occurrence: US)
  Receive Date: 20200803
  Receipt Date: 20200803
  Transmission Date: 20201103
  Serious: No
  Sender: FDA-Public Use
  Company Number: US-SA-2020SA200091

PATIENT

DRUGS (2)
  1. ENOXAPARIN SODIUM ? WINTHROP [Suspect]
     Active Substance: ENOXAPARIN SODIUM
     Dosage: UNK
  2. ENOXAPARIN SODIUM ? WINTHROP [Suspect]
     Active Substance: ENOXAPARIN SODIUM
     Indication: POST PROCEDURAL COMPLICATION
     Dosage: 30 MG, BID
     Route: 065
     Dates: start: 20200717, end: 20200727

REACTIONS (3)
  - Urticaria [Unknown]
  - Throat irritation [Unknown]
  - Injection site vesicles [Unknown]
